FAERS Safety Report 5195747-6 (Version None)
Quarter: 2007Q1

REPORT INFORMATION
  Report Type: 
  Country: None (occurrence: None)
  Receive Date: 20070102
  Receipt Date: 20061226
  Transmission Date: 20070707
  Serious: Yes (Life-Threatening, Other)
  Sender: FDA-Public Use
  Company Number: 2006AP05923

PATIENT
  Age: 27778 Day
  Sex: Male
  Weight: 58 kg

DRUGS (28)
  1. DIPRIVAN [Suspect]
     Indication: INDUCTION OF ANAESTHESIA
     Route: 042
     Dates: start: 20061205, end: 20061205
  2. SULPERAZON [Concomitant]
     Dates: start: 20061205, end: 20061205
  3. SULPERAZON [Concomitant]
     Dates: start: 20061205, end: 20061205
  4. MARCAINE [Concomitant]
     Indication: EPIDURAL ANAESTHESIA
     Route: 008
     Dates: start: 20061205, end: 20061205
  5. MUSCULAX [Concomitant]
     Indication: HYPOTONIA
  6. MUSCULAX [Concomitant]
     Route: 042
     Dates: start: 20061205, end: 20061205
  7. MUSCULAX [Concomitant]
     Route: 042
     Dates: start: 20061205, end: 20061205
  8. FENTANEST [Concomitant]
     Indication: MAINTENANCE OF ANAESTHESIA
     Dates: start: 20061205, end: 20061205
  9. CEFMETAZON [Concomitant]
     Indication: INFECTION PROPHYLAXIS
     Route: 042
     Dates: start: 20061205, end: 20061205
  10. ATROPINE SULFATE [Concomitant]
     Indication: PREMEDICATION
     Route: 030
     Dates: start: 20061205, end: 20061205
  11. FULCALIQ 1 [Concomitant]
     Dates: start: 20061205, end: 20061205
  12. FULCALIQ 1 [Concomitant]
     Dates: start: 20061205, end: 20061205
  13. FULCALIQ 1 [Concomitant]
     Dates: start: 20061205, end: 20061205
  14. MINERALIN [Concomitant]
     Dates: start: 20061205, end: 20061205
  15. MINERALIN [Concomitant]
     Dates: start: 20061205, end: 20061205
  16. XYLOCAINE [Concomitant]
     Indication: INDUCTION OF ANAESTHESIA
     Route: 008
     Dates: start: 20061205, end: 20061205
  17. XYLOCAINE [Concomitant]
     Route: 008
     Dates: start: 20061205, end: 20061205
  18. XYLOCAINE [Concomitant]
     Route: 008
     Dates: start: 20061205, end: 20061205
  19. FORANE [Concomitant]
     Indication: MAINTENANCE OF ANAESTHESIA
     Route: 055
     Dates: start: 20061205, end: 20061205
  20. EPHEDRINE [Concomitant]
     Indication: BLOOD PRESSURE DECREASED
     Route: 042
     Dates: start: 20061205, end: 20061205
  21. ALBUMINATE [Concomitant]
     Indication: BLOOD PRESSURE DECREASED
     Dates: start: 20061205, end: 20061205
  22. HESPANDER [Concomitant]
     Indication: BLOOD PRESSURE MANAGEMENT
     Dates: start: 20061205, end: 20061205
  23. PANTHENYL [Concomitant]
     Dates: start: 20061205, end: 20061205
  24. KAYTWO [Concomitant]
     Dates: start: 20061205, end: 20061205
  25. SOLYUGEN G [Concomitant]
     Dates: start: 20061205, end: 20061205
  26. INTRAFAT [Concomitant]
     Dates: start: 20061205, end: 20061205
  27. FORANE [Concomitant]
  28. THIOPENTAL SODIUM [Concomitant]

REACTIONS (2)
  - ANAPHYLACTIC REACTION [None]
  - DISSEMINATED INTRAVASCULAR COAGULATION [None]
